FAERS Safety Report 5710091-3 (Version None)
Quarter: 2008Q2

REPORT INFORMATION
  Report Type: 
  Country: None (occurrence: None)
  Receive Date: 20080418
  Receipt Date: 20071019
  Transmission Date: 20081010
  Serious: No
  Sender: FDA-Public Use
  Company Number: US-ASTRAZENECA-2007UW24397

PATIENT
  Age: 72 Year
  Sex: Female
  Weight: 77.1 kg

DRUGS (7)
  1. TOPROL-XL [Suspect]
     Indication: HYPERTENSION
     Route: 048
  2. TOPROL-XL [Suspect]
     Route: 048
  3. LOPRESSOR [Concomitant]
  4. PRILOSEC [Concomitant]
  5. CRESTOR [Concomitant]
  6. PRAVACHOL [Concomitant]
  7. ZETIA [Concomitant]

REACTIONS (4)
  - BLOOD PRESSURE INCREASED [None]
  - ILL-DEFINED DISORDER [None]
  - TREMOR [None]
  - VERTIGO [None]
